FAERS Safety Report 6706342-9 (Version None)
Quarter: 2010Q2

REPORT INFORMATION
  Report Type: 
  Country: None (occurrence: None)
  Receive Date: 20100503
  Receipt Date: 20100419
  Transmission Date: 20101027
  Serious: Yes (Hospitalization, Other)
  Sender: FDA-Public Use
  Company Number: PHEH2006US08863

PATIENT
  Sex: Female

DRUGS (10)
  1. AREDIA [Suspect]
  2. ZOMETA [Suspect]
     Dosage: UNK
     Route: 042
  3. LISINOPRIL [Concomitant]
  4. VERAPAMIL [Concomitant]
  5. CARVEDILOL [Concomitant]
  6. FLAGYL [Concomitant]
  7. PENICILLIN NOS [Concomitant]
  8. NOTUSS [Concomitant]
  9. HYDROCODONE BITARTRATE [Concomitant]
  10. NEURONTIN [Concomitant]

REACTIONS (11)
  - ANXIETY [None]
  - DECREASED INTEREST [None]
  - DIABETES MELLITUS [None]
  - GENERAL PHYSICAL HEALTH DETERIORATION [None]
  - METASTASES TO BONE [None]
  - OPEN REDUCTION OF FRACTURE [None]
  - OSTEONECROSIS [None]
  - PAIN [None]
  - PALPITATIONS [None]
  - PATHOLOGICAL FRACTURE [None]
  - TRIGEMINAL NEURALGIA [None]
